FAERS Safety Report 20622571 (Version 1)
Quarter: 2022Q1

REPORT INFORMATION
  Report Type: Report from Study
  Country: US (occurrence: US)
  Receive Date: 20220322
  Receipt Date: 20220322
  Transmission Date: 20220423
  Serious: Yes (Other)
  Sender: FDA-Public Use
  Company Number: US-ABBVIE-22K-163-4319388-00

PATIENT
  Age: 50 Year
  Sex: Female

DRUGS (1)
  1. SKYRIZI [Suspect]
     Active Substance: RISANKIZUMAB-RZAA
     Indication: Psoriasis
     Route: 058

REACTIONS (8)
  - Tuberculosis [Unknown]
  - Respiratory disorder [Not Recovered/Not Resolved]
  - Thyroid function test abnormal [Unknown]
  - Pyrexia [Unknown]
  - Malaise [Unknown]
  - Headache [Unknown]
  - Sinus congestion [Unknown]
  - Illness [Unknown]

NARRATIVE: CASE EVENT DATE: 20210201
